FAERS Safety Report 17502000 (Version 1)
Quarter: 2020Q1

REPORT INFORMATION
  Report Type: Spontaneous
  Country: US (occurrence: US)
  Receive Date: 20200305
  Receipt Date: 20200305
  Transmission Date: 20200409
  Serious: Yes (Other)
  Sender: FDA-Public Use
  Company Number: None

PATIENT
  Age: 59 Year
  Sex: Female
  Weight: 63 kg

DRUGS (1)
  1. RETACRIT [Suspect]
     Active Substance: EPOETIN ALFA-EPBX
     Indication: MYELODYSPLASTIC SYNDROME
     Dosage: 100000 UNK - UNKNOWN??
     Route: 058
     Dates: start: 20190607, end: 20191126

REACTIONS (3)
  - Blister [None]
  - Flushing [None]
  - Hyperhidrosis [None]

NARRATIVE: CASE EVENT DATE: 20190705
